FAERS Safety Report 7511396-6 (Version None)
Quarter: 2011Q2

REPORT INFORMATION
  Report Type: 
  Country: None (occurrence: None)
  Receive Date: 20110531
  Receipt Date: 20110125
  Transmission Date: 20111010
  Serious: Yes (Hospitalization, Other)
  Sender: FDA-Public Use
  Company Number: US-BAYER-201039225NA

PATIENT
  Age: 35 Year
  Sex: Female
  Weight: 63.492 kg

DRUGS (3)
  1. YASMIN [Suspect]
     Indication: CONTRACEPTION
     Route: 048
     Dates: start: 20020201, end: 20051201
  2. PROPOXYPHENE HYDROCHLORIDE [Concomitant]
     Dosage: 650 MG, UNK
     Dates: start: 20030416, end: 20030501
  3. BELLADONNA [Concomitant]
     Dosage: 16.2 MG, QD
     Dates: start: 20030303, end: 20030403

REACTIONS (6)
  - CHOLELITHIASIS [None]
  - CHOLECYSTECTOMY [None]
  - CHOLECYSTITIS CHRONIC [None]
  - GALLBLADDER CHOLESTEROLOSIS [None]
  - ABDOMINAL PAIN UPPER [None]
  - BILIARY DYSKINESIA [None]
